FAERS Safety Report 8717169 (Version 8)
Quarter: 2013Q2

REPORT INFORMATION
  Report Type: Report from Study
  Country: CA (occurrence: CA)
  Receive Date: 20120810
  Receipt Date: 20130514
  Transmission Date: 20140414
  Serious: Yes (Other)
  Sender: FDA-Public Use
  Company Number: PHHY2012CA065380

PATIENT
  Age: 48 Year
  Sex: Male

DRUGS (3)
  1. SANDOSTATIN LAR [Suspect]
     Indication: THYMOMA
     Dosage: 30 MG, QMO
     Route: 030
     Dates: start: 20120112, end: 20130318
  2. MEFLOQUINE [Concomitant]
     Dosage: 250 MG ONCE A WEEK
  3. NOVOMETHACIN [Concomitant]
     Dosage: UNK UKN, UNK

REACTIONS (16)
  - Neoplasm [Unknown]
  - Viral infection [Recovering/Resolving]
  - Lung infection [Not Recovered/Not Resolved]
  - Dysphagia [Not Recovered/Not Resolved]
  - Dyspnoea [Unknown]
  - Chest pain [Recovered/Resolved]
  - Thirst [Unknown]
  - Furuncle [Recovered/Resolved]
  - Purulence [Recovered/Resolved]
  - Nipple swelling [Not Recovered/Not Resolved]
  - Scab [Unknown]
  - Chills [Unknown]
  - Back pain [Recovered/Resolved]
  - Dizziness [Unknown]
  - Blood glucose increased [Recovering/Resolving]
  - Pruritus [Unknown]
